FAERS Safety Report 5155957-0 (Version None)
Quarter: 2006Q4

REPORT INFORMATION
  Report Type: 
  Country: None (occurrence: None)
  Receive Date: 20061114
  Receipt Date: 20061106
  Transmission Date: 20070319
  Serious: Yes (Other)
  Sender: FDA-Public Use
  Company Number: 231473

PATIENT
  Age: 34 Year
  Sex: Female

DRUGS (6)
  1. XOLAIR [Suspect]
     Indication: ASTHMA
     Dosage: 300 MG, Q4W, SUBCUTANEOUS
     Route: 058
     Dates: start: 20060404, end: 20060821
  2. XOLAIR [Suspect]
  3. ADVAIR DISKUS 100/50 [Concomitant]
  4. CLARITIN [Concomitant]
  5. ORTHO TRI-CYCLEN (ETHINYL ESTRADIOL, NORGESTREL) [Concomitant]
  6. SULINDAC [Concomitant]

REACTIONS (4)
  - ARTHRALGIA [None]
  - ARTHRITIS [None]
  - DERMATITIS ALLERGIC [None]
  - ERYTHEMA NODOSUM [None]
